FAERS Safety Report 10778868 (Version 2)
Quarter: 2016Q3

REPORT INFORMATION
  Report Type: Spontaneous
  Country: US (occurrence: US)
  Receive Date: 20150210
  Receipt Date: 20160919
  Transmission Date: 20161109
  Serious: No
  Sender: FDA-Public Use
  Company Number: US-TEVA-531645USA

PATIENT
  Sex: Female

DRUGS (3)
  1. ABILIFY [Concomitant]
     Active Substance: ARIPIPRAZOLE
     Indication: DELUSION
  2. ABILIFY [Concomitant]
     Active Substance: ARIPIPRAZOLE
     Indication: PARANOIA
  3. MONTELUKAST [Suspect]
     Active Substance: MONTELUKAST SODIUM
     Route: 065
     Dates: start: 201209

REACTIONS (7)
  - Delusion [Unknown]
  - Paranoia [Unknown]
  - Product substitution issue [Unknown]
  - Depression [Unknown]
  - Anger [Unknown]
  - Aggression [Unknown]
  - Fear [Unknown]
